FAERS Safety Report 6692586-1 (Version None)
Quarter: 2010Q2

REPORT INFORMATION
  Report Type: 
  Country: None (occurrence: None)
  Receive Date: 20100422
  Receipt Date: 20100412
  Transmission Date: 20101027
  Serious: Yes (Other)
  Sender: FDA-Public Use
  Company Number: JP-PFIZER INC-2010046978

PATIENT
  Age: 27 Year
  Sex: Female

DRUGS (3)
  1. CHAMPIX [Suspect]
     Indication: NICOTINE DEPENDENCE
     Dosage: 0.5 MG, 1X/DAY
     Route: 048
     Dates: start: 20100407, end: 20100408
  2. RIZE [Concomitant]
     Indication: ANXIETY
     Dosage: UNK
  3. MUCOSTA [Concomitant]
     Dosage: 3 TABLETS/DAY

REACTIONS (3)
  - HYPERVENTILATION [None]
  - HYPOAESTHESIA [None]
  - NAUSEA [None]
